FAERS Safety Report 16249164 (Version 2)
Quarter: 2019Q2

REPORT INFORMATION
  Report Type: Spontaneous
  Country: US (occurrence: US)
  Receive Date: 20190429
  Receipt Date: 20190520
  Transmission Date: 20190711
  Serious: No
  Sender: FDA-Public Use
  Company Number: US-BAYER-2019-085684

PATIENT
  Age: 80 Year
  Sex: Female

DRUGS (1)
  1. CLARITIN [Suspect]
     Active Substance: LORATADINE
     Route: 048
     Dates: start: 20190426

REACTIONS (3)
  - Product package associated injury [Unknown]
  - Product closure removal difficult [None]
  - Product label issue [None]

NARRATIVE: CASE EVENT DATE: 20190426
